FAERS Safety Report 19956210 (Version 4)
Quarter: 2022Q1

REPORT INFORMATION
  Report Type: Report from Study
  Country: CA (occurrence: CA)
  Receive Date: 20211014
  Receipt Date: 20220301
  Transmission Date: 20220423
  Serious: Yes (Other)
  Sender: FDA-Public Use
  Company Number: CA-MYLANLABS-2021M1071592

PATIENT
  Age: 49 Year
  Sex: Female

DRUGS (2)
  1. HULIO [Suspect]
     Active Substance: ADALIMUMAB-FKJP
     Indication: Hidradenitis
     Dosage: 160 MILLIGRAM, FIRST WEEK
     Dates: start: 20211005
  2. HULIO [Suspect]
     Active Substance: ADALIMUMAB-FKJP
     Indication: Ankylosing spondylitis
     Dosage: UNK, Q2W

REACTIONS (8)
  - Angina pectoris [Unknown]
  - Diarrhoea [Unknown]
  - Faeces discoloured [Unknown]
  - Abdominal pain [Unknown]
  - Abdominal discomfort [Unknown]
  - Hypersensitivity [Recovered/Resolved]
  - Product dose omission issue [Unknown]
  - Injection site reaction [Unknown]
